FAERS Safety Report 4898674-4 (Version None)
Quarter: 2006Q1

REPORT INFORMATION
  Report Type: 
  Country: None (occurrence: None)
  Receive Date: 20060202
  Receipt Date: 20001113
  Transmission Date: 20060701
  Serious: Yes (Life-Threatening, Other)
  Sender: FDA-Public Use
  Company Number: ZA-2000-BP-02112

PATIENT
  Sex: Male

DRUGS (8)
  1. VIRAMUNE [Suspect]
     Indication: ACQUIRED IMMUNODEFICIENCY SYNDROME
     Route: 048
     Dates: start: 20000927
  2. VITAMIN K [Concomitant]
     Indication: PROPHYLAXIS
     Route: 030
     Dates: start: 20000925, end: 20000925
  3. SOFRAMYCIN [Concomitant]
     Indication: PROPHYLAXIS
     Route: 031
     Dates: start: 20000825, end: 20000928
  4. TICE BCG [Concomitant]
     Indication: PROPHYLAXIS
     Route: 023
     Dates: start: 20000926, end: 20000926
  5. BETADINE ANTISEPTIC OINTMENT [Concomitant]
     Indication: PROPHYLAXIS
     Route: 061
     Dates: start: 20000926, end: 20000926
  6. FERROUS SULFATE (MATERNAL DOSE) [Concomitant]
     Indication: ANAEMIA
     Route: 015
     Dates: start: 20000816, end: 20000924
  7. FOLIC ACID (MATERNAL DOSE) [Concomitant]
     Indication: ANAEMIA
     Route: 015
     Dates: start: 20000816, end: 20000924
  8. ERYTHROMYCIN (MATERNAL DOSE) [Concomitant]
     Indication: CHANCROID
     Route: 015
     Dates: start: 20000919, end: 20000924

REACTIONS (7)
  - ANAEMIA [None]
  - BASOPHIL PERCENTAGE INCREASED [None]
  - LYMPHOCYTE PERCENTAGE INCREASED [None]
  - MONOCYTE PERCENTAGE DECREASED [None]
  - MONOCYTE PERCENTAGE INCREASED [None]
  - NEUTROPENIA [None]
  - PLATELET COUNT INCREASED [None]
